FAERS Safety Report 8902504 (Version 1)
Quarter: 2012Q4

REPORT INFORMATION
  Report Type: Report from Study
  Country: DE (occurrence: DE)
  Receive Date: 20121112
  Receipt Date: 20121112
  Transmission Date: 20130627
  Serious: Yes (Hospitalization)
  Sender: FDA-Public Use
  Company Number: DE-ROCHE-1153878

PATIENT
  Age: 44 Year
  Sex: Female
  Weight: 82.7 kg

DRUGS (3)
  1. BEVACIZUMAB [Suspect]
     Indication: OVARIAN CANCER
     Dosage: Last dose prior to SAE 08/Oct/2012
     Route: 042
     Dates: start: 20120806
  2. CARBOPLATIN [Suspect]
     Indication: OVARIAN CANCER
     Dosage: Last dose prior to SAE 08/Oct/2012
     Route: 042
     Dates: start: 20120716
  3. PACLITAXEL [Suspect]
     Indication: OVARIAN CANCER
     Dosage: Last dose prior to SAE 08/Oct/2012
     Route: 042
     Dates: start: 20120716

REACTIONS (1)
  - Foot fracture [Recovered/Resolved]
